FAERS Safety Report 10336940 (Version 3)
Quarter: 2014Q3

REPORT INFORMATION
  Report Type: Report from Study
  Country: AU (occurrence: AU)
  Receive Date: 20140723
  Receipt Date: 20140728
  Transmission Date: 20150326
  Serious: Yes (Hospitalization, Other)
  Sender: FDA-Public Use
  Company Number: PHHY2014AU078578

PATIENT
  Age: 26 Year
  Sex: Male

DRUGS (3)
  1. NAPROXEN. [Concomitant]
     Active Substance: NAPROXEN
     Dosage: UNK
  2. NSAID^S [Concomitant]
     Active Substance: UNSPECIFIED INGREDIENT
     Dosage: UNK
  3. CLOZARIL [Suspect]
     Active Substance: CLOZAPINE
     Indication: SCHIZOPHRENIA, PARANOID TYPE
     Dosage: 400 MG, UNK
     Dates: start: 20130621, end: 20140622

REACTIONS (23)
  - C-reactive protein increased [Unknown]
  - Myocarditis [Unknown]
  - Systolic dysfunction [Unknown]
  - Ventricular fibrillation [Unknown]
  - Cough [Unknown]
  - Arthralgia [Unknown]
  - Rheumatic heart disease [Unknown]
  - Mitral valve incompetence [Unknown]
  - Joint effusion [Not Recovered/Not Resolved]
  - Muscle necrosis [Unknown]
  - Granulomatous liver disease [Unknown]
  - Rheumatic fever [Unknown]
  - Malaise [Unknown]
  - Ejection fraction abnormal [Unknown]
  - Electrocardiogram abnormal [Unknown]
  - Pyrexia [Not Recovered/Not Resolved]
  - Left ventricular dysfunction [Recovered/Resolved]
  - Neutrophilia [Unknown]
  - Arthritis [Unknown]
  - Liver function test abnormal [Unknown]
  - Sinus tachycardia [Unknown]
  - Tricuspid valve incompetence [Unknown]
  - Thymus disorder [Unknown]

NARRATIVE: CASE EVENT DATE: 20140622
